FAERS Safety Report 4354226-6 (Version None)
Quarter: 2004Q2

REPORT INFORMATION
  Report Type: 
  Country: None (occurrence: None)
  Receive Date: 20040506
  Receipt Date: 20040115
  Transmission Date: 20050107
  Serious: Yes (Other)
  Sender: FDA-Public Use
  Company Number: AU-GLAXOSMITHKLINE-B0319984A

PATIENT
  Sex: Female

DRUGS (2)
  1. ZYBAN [Suspect]
     Dates: end: 20040120
  2. VALIUM [Concomitant]
     Dosage: 2MG TWICE PER DAY
     Route: 048

REACTIONS (13)
  - ABDOMINAL PAIN UPPER [None]
  - ANOREXIA [None]
  - BALANCE DISORDER [None]
  - CONSTIPATION [None]
  - DEAFNESS [None]
  - DISTURBANCE IN ATTENTION [None]
  - DYSGEUSIA [None]
  - EAR DISORDER [None]
  - FEELING ABNORMAL [None]
  - NAUSEA [None]
  - SLEEP DISORDER [None]
  - TINNITUS [None]
  - VOMITING [None]
